FAERS Safety Report 16344841 (Version 1)
Quarter: 2019Q2

REPORT INFORMATION
  Report Type: Spontaneous
  Country: FR (occurrence: FR)
  Receive Date: 20190522
  Receipt Date: 20190522
  Transmission Date: 20190711
  Serious: Yes (Life-Threatening)
  Sender: FDA-Public Use
  Company Number: FR-BAXTER-2019BAX009808

PATIENT
  Age: 66 Year
  Sex: Male
  Weight: 115 kg

DRUGS (4)
  1. CARBOPLATIN ACCORD [Concomitant]
     Active Substance: CARBOPLATIN
     Indication: CENTRAL NERVOUS SYSTEM LYMPHOMA
     Route: 042
     Dates: start: 20190420
  2. ETOPOSIDE MYLAN [Concomitant]
     Active Substance: ETOPOSIDE
     Indication: CENTRAL NERVOUS SYSTEM LYMPHOMA
     Dosage: DOSAGE FORM: SOLUTION TO BE DILUTED FOR INFUSION
     Route: 042
     Dates: start: 20190419, end: 20190421
  3. EMEND [Suspect]
     Active Substance: APREPITANT
     Indication: PROPHYLAXIS OF NAUSEA AND VOMITING
     Route: 048
     Dates: start: 20190419, end: 20190421
  4. HOLOXAN 2000 MG, POUDRE POUR USAGE PARENT?RAL [Suspect]
     Active Substance: IFOSFAMIDE
     Indication: CENTRAL NERVOUS SYSTEM LYMPHOMA
     Route: 042
     Dates: start: 20190420

REACTIONS (2)
  - Drug interaction [Recovered/Resolved]
  - Encephalopathy [Recovering/Resolving]

NARRATIVE: CASE EVENT DATE: 201904
